FAERS Safety Report 25284489 (Version 1)
Quarter: 2025Q2

REPORT INFORMATION
  Report Type: Spontaneous
  Country: ES (occurrence: ES)
  Receive Date: 20250508
  Receipt Date: 20250508
  Transmission Date: 20250717
  Serious: Yes (Hospitalization, Other)
  Sender: APELLIS PHARMACEUTICALS
  Company Number: ES-BIOVITRUM-2025-ES-006224

PATIENT

DRUGS (1)
  1. PEGCETACOPLAN [Suspect]
     Active Substance: PEGCETACOPLAN
     Indication: Paroxysmal nocturnal haemoglobinuria
     Route: 042

REACTIONS (4)
  - Pneumonia [Unknown]
  - Haemolysis [Unknown]
  - Haemoglobin decreased [Unknown]
  - Incorrect route of product administration [Unknown]
